FAERS Safety Report 9735513 (Version 2)
Quarter: 2015Q3

REPORT INFORMATION
  Report Type: Spontaneous
  Country: US (occurrence: US)
  Receive Date: 20131206
  Receipt Date: 20150804
  Transmission Date: 20151125
  Serious: No
  Sender: FDA-Public Use
  Company Number: US-GILEAD-2009-0023422

PATIENT
  Age: 62 Year
  Sex: Male
  Weight: 104.33 kg

DRUGS (16)
  1. FUROSEMIDE. [Concomitant]
     Active Substance: FUROSEMIDE
  2. LETAIRIS [Suspect]
     Active Substance: AMBRISENTAN
     Indication: PULMONARY ARTERIAL HYPERTENSION
     Route: 048
     Dates: start: 20090710
  3. HYDROCODONE [Concomitant]
     Active Substance: HYDROCODONE
  4. ASPIRIN. [Concomitant]
     Active Substance: ASPIRIN
  5. OXYGEN. [Concomitant]
     Active Substance: OXYGEN
  6. NOVOLIN R [Concomitant]
     Active Substance: INSULIN HUMAN
  7. REMODULIN [Concomitant]
     Active Substance: TREPROSTINIL
  8. LYRICA [Concomitant]
     Active Substance: PREGABALIN
  9. TRICOR [Concomitant]
     Active Substance: FENOFIBRATE
  10. SPIRIVA [Concomitant]
     Active Substance: TIOTROPIUM BROMIDE MONOHYDRATE
  11. ADVAIR HFA [Concomitant]
     Active Substance: FLUTICASONE PROPIONATE\SALMETEROL XINAFOATE
  12. CARVEDILOL. [Concomitant]
     Active Substance: CARVEDILOL
  13. COMPAZINE [Concomitant]
     Active Substance: PROCHLORPERAZINE MALEATE
  14. OMEPRAZOLE. [Concomitant]
     Active Substance: OMEPRAZOLE
  15. TEMAZEPAM. [Concomitant]
     Active Substance: TEMAZEPAM
  16. LANTUS [Concomitant]
     Active Substance: INSULIN GLARGINE

REACTIONS (6)
  - Dizziness [Recovering/Resolving]
  - Fall [Recovering/Resolving]
  - Oedema [Recovering/Resolving]
  - Unevaluable event [Recovering/Resolving]
  - Vision blurred [Recovering/Resolving]
  - Weight increased [Recovering/Resolving]
